FAERS Safety Report 24799994 (Version 1)
Quarter: 2025Q1

REPORT INFORMATION
  Report Type: Spontaneous
  Country: US (occurrence: US)
  Receive Date: 20250102
  Receipt Date: 20250102
  Transmission Date: 20250408
  Serious: No
  Sender: ELI LILLY AND COMPANY
  Company Number: US-ELI_LILLY_AND_COMPANY-US202501000278

PATIENT
  Age: 82 Year
  Sex: Female

DRUGS (3)
  1. HUMULIN 70/30 [Suspect]
     Active Substance: INSULIN HUMAN
     Indication: Type 2 diabetes mellitus
     Route: 058
     Dates: start: 2021
  2. HUMULIN 70/30 [Suspect]
     Active Substance: INSULIN HUMAN
     Route: 058
     Dates: start: 2021
  3. HUMULIN 70/30 [Suspect]
     Active Substance: INSULIN HUMAN
     Route: 058
     Dates: start: 2021

REACTIONS (2)
  - Hypoacusis [Not Recovered/Not Resolved]
  - Accidental underdose [Unknown]
